FAERS Safety Report 6200209-0 (Version None)
Quarter: 2009Q2

REPORT INFORMATION
  Report Type: 
  Country: None (occurrence: None)
  Receive Date: 20090522
  Receipt Date: 20090518
  Transmission Date: 20091009
  Serious: Yes (Other)
  Sender: FDA-Public Use
  Company Number: US-JNJFOC-20090504712

PATIENT
  Age: 81 Year
  Sex: Male
  Weight: 61.24 kg

DRUGS (6)
  1. PEPCID COMPLETE [Suspect]
     Route: 048
  2. PEPCID COMPLETE [Suspect]
     Indication: DYSPEPSIA
     Route: 048
  3. PREDNISONE [Concomitant]
     Indication: ASTHMA
  4. DILTIAZEM CD [Concomitant]
     Indication: HYPERTENSION
  5. FUROSEMIDE [Concomitant]
     Indication: DIURETIC THERAPY
  6. BENICAR [Concomitant]
     Indication: HYPERTENSION

REACTIONS (1)
  - ASTHMA [None]
